FAERS Safety Report 18379516 (Version 2)
Quarter: 2020Q4

REPORT INFORMATION
  Report Type: Spontaneous
  Country: TH (occurrence: TH)
  Receive Date: 20201013
  Receipt Date: 20201017
  Transmission Date: 20210114
  Serious: Yes (Hospitalization, Other)
  Sender: FDA-Public Use
  Company Number: TH-B.I. PHARMACEUTICALS,INC./RIDGEFIELD-2020-BI-053050

PATIENT
  Age: 61 Year
  Sex: Female
  Weight: 59 kg

DRUGS (9)
  1. MIXTARD [INSULIN;ISOPHANE INSULIN] [Concomitant]
     Indication: TYPE 2 DIABETES MELLITUS
     Dosage: 18 UNITS IN THE MORNING,  10 UNITS IN THE EVENING? SINCE THE REPORTER DOES NOT REMEMBER WHEN THE PAT
     Route: 065
     Dates: start: 20180611
  2. METFORMIN [Concomitant]
     Active Substance: METFORMIN HYDROCHLORIDE
     Indication: TYPE 2 DIABETES MELLITUS
     Dosage: MF 2*3 (2X 500MG TABLETS 3 TIMES DAILY)  TREATMENT FROM PRIMARY CARE HOSPITAL. DUE TO THE PATIENT ST
     Route: 065
  3. METFORMIN [Concomitant]
     Active Substance: METFORMIN HYDROCHLORIDE
     Dosage: MF 2*2 (2 TABLETS TWICE DAILY)
     Route: 065
     Dates: start: 20170706
  4. METFORMIN [Concomitant]
     Active Substance: METFORMIN HYDROCHLORIDE
     Dosage: MF 1*2 (1 TABLET TWICE DAILY)? SINCE THE REPORTER DOES NOT REMEMBER WHEN THE PATIENT WAS DISCHARGED
     Route: 065
  5. ACTOS [Concomitant]
     Active Substance: PIOGLITAZONE HYDROCHLORIDE
     Indication: TYPE 2 DIABETES MELLITUS
     Dosage: ACTOS 2*1 (2X15MG TABLETS ONCE DAILY) TREATMENT FROM PRIMARY CARE HOSPITAL. DUE TO THE PATIENT START
     Route: 065
     Dates: end: 20190523
  6. MIXTARD [INSULIN;ISOPHANE INSULIN] [Concomitant]
     Dosage: 16 UNITS IN THE MORNING, 8 UNITS IN THE EVENING.?SINCE THE REPORTER DOES NOT REMEMBER WHEN THE PATIE
     Route: 065
  7. GLIPIZIDE. [Concomitant]
     Active Substance: GLIPIZIDE
     Dosage: GP 1*2 (1 TABLET TWICE DAILY)
     Route: 065
     Dates: start: 20200507
  8. JARDIANCE [Suspect]
     Active Substance: EMPAGLIFLOZIN
     Indication: TYPE 2 DIABETES MELLITUS
     Route: 065
     Dates: start: 20180111, end: 20191207
  9. GLIPIZIDE. [Concomitant]
     Active Substance: GLIPIZIDE
     Indication: TYPE 2 DIABETES MELLITUS
     Dosage: GP 2*2 (2 X 5MG TABLETS TWICE DAILY)  TREATMENT FROM PRIMARY CARE HOSPITAL. DUE TO THE PATIENT START
     Route: 065

REACTIONS (3)
  - Diabetic ketoacidosis [Recovered/Resolved]
  - Gastrointestinal obstruction [Recovered/Resolved]
  - Hyperglycaemia [Recovered/Resolved]

NARRATIVE: CASE EVENT DATE: 20180611
